FAERS Safety Report 11121949 (Version 1)
Quarter: 2015Q2

REPORT INFORMATION
  Report Type: Spontaneous
  Country: GB (occurrence: GB)
  Receive Date: 20150519
  Receipt Date: 20150519
  Transmission Date: 20150821
  Serious: Yes (Hospitalization)
  Sender: FDA-Public Use
  Company Number: GB-TEVA-563092ACC

PATIENT
  Age: 69 Year
  Sex: Male

DRUGS (3)
  1. ASPIRIN. [Suspect]
     Active Substance: ASPIRIN
     Route: 048
  2. CLOPIDOGREL [Suspect]
     Active Substance: CLOPIDOGREL BISULFATE
     Route: 048
  3. SIMVASTATIN. [Concomitant]
     Active Substance: SIMVASTATIN

REACTIONS (3)
  - Haematemesis [Recovering/Resolving]
  - Gastrointestinal haemorrhage [Recovering/Resolving]
  - Oesophageal ulcer [Recovering/Resolving]

NARRATIVE: CASE EVENT DATE: 20150506
